FAERS Safety Report 25563916 (Version 1)
Quarter: 2025Q3

REPORT INFORMATION
  Report Type: Spontaneous
  Country: US (occurrence: US)
  Receive Date: 20250716
  Receipt Date: 20250716
  Transmission Date: 20251020
  Serious: No
  Sender: LEO PHARM
  Company Number: US-LEO Pharma-381400

PATIENT
  Age: 71 Year
  Sex: Male

DRUGS (1)
  1. ADBRY [Suspect]
     Active Substance: TRALOKINUMAB-LDRM
     Indication: Dermatitis atopic
     Dosage: REPORTED AS ONGOING
     Route: 058
     Dates: start: 202401

REACTIONS (2)
  - Fatigue [Recovering/Resolving]
  - Arthralgia [Recovering/Resolving]
